FAERS Safety Report 21852844 (Version 1)
Quarter: 2023Q1

REPORT INFORMATION
  Report Type: Report from Study
  Country: US (occurrence: US)
  Receive Date: 20230112
  Receipt Date: 20230112
  Transmission Date: 20230418
  Serious: Yes (Hospitalization)
  Sender: FDA-Public Use
  Company Number: US-EXELIXIS-CABO-22059300

PATIENT
  Sex: Male
  Weight: 72.109 kg

DRUGS (1)
  1. CABOMETYX [Suspect]
     Active Substance: CABOZANTINIB S-MALATE
     Indication: Renal cancer
     Dosage: 40 MG, QD
     Route: 048
     Dates: start: 20220701

REACTIONS (5)
  - Body temperature increased [Unknown]
  - White blood cell count decreased [Unknown]
  - Dehydration [Unknown]
  - Thyroid disorder [Unknown]
  - Oedema peripheral [Unknown]
